FAERS Safety Report 20896521 (Version 1)
Quarter: 2022Q2

REPORT INFORMATION
  Report Type: Spontaneous
  Country: IN (occurrence: IN)
  Receive Date: 20220531
  Receipt Date: 20220531
  Transmission Date: 20220721
  Serious: Yes (Other)
  Sender: FDA-Public Use
  Company Number: IN-35507-2022-07545

PATIENT
  Age: 23 Year
  Sex: Male

DRUGS (6)
  1. LEVETIRACETAM [Suspect]
     Active Substance: LEVETIRACETAM
     Indication: Head titubation
     Dosage: UNK
     Route: 065
  2. LEVETIRACETAM [Suspect]
     Active Substance: LEVETIRACETAM
     Indication: Dyskinesia
  3. METHYLPREDNISOLONE [Suspect]
     Active Substance: METHYLPREDNISOLONE
     Indication: Encephalitis
     Dosage: 1 GRAM
     Route: 065
  4. MIDAZOLAM [Suspect]
     Active Substance: MIDAZOLAM
     Indication: Head titubation
     Dosage: UNK, INFUSION
     Route: 065
  5. MIDAZOLAM [Suspect]
     Active Substance: MIDAZOLAM
     Indication: Dyskinesia
  6. PHENOBARBITAL [Concomitant]
     Active Substance: PHENOBARBITAL
     Indication: Seizure
     Dosage: UNK
     Route: 065

REACTIONS (2)
  - Drug ineffective for unapproved indication [Unknown]
  - Off label use [Unknown]
